FAERS Safety Report 7687751-0 (Version None)
Quarter: 2011Q3

REPORT INFORMATION
  Report Type: 
  Country: None (occurrence: None)
  Receive Date: 20110817
  Receipt Date: 20110815
  Transmission Date: 20111222
  Serious: No
  Sender: FDA-Public Use
  Company Number: US-BAYER-201012019NA

PATIENT
  Age: 24 Year
  Sex: Female

DRUGS (3)
  1. YAZ [Suspect]
     Indication: CONTRACEPTION
     Dosage: UNK
     Dates: start: 20070101
  2. YAZ [Suspect]
     Indication: OVARIAN CYST
  3. ANTIBIOTICS [Concomitant]
     Indication: SINUSITIS

REACTIONS (1)
  - SINUSITIS [None]
